FAERS Safety Report 8850419 (Version 2)
Quarter: 2012Q4

REPORT INFORMATION
  Report Type: 
  Country: FR (occurrence: FR)
  Receive Date: 20121019
  Receipt Date: 20121031
  Transmission Date: 20130627
  Serious: Yes (Hospitalization)
  Sender: FDA-Public Use
  Company Number: FR-B.I. PHARMACEUTICALS,INC./RIDGEFIELD-2012-FF-01465FF

PATIENT
  Age: 90 None
  Sex: Male

DRUGS (2)
  1. PRADAXA [Suspect]
     Indication: ATRIAL FIBRILLATION
     Dosage: 220 mg
     Route: 048
     Dates: start: 20120613, end: 20120922
  2. KARDEGIC [Suspect]
     Indication: ATRIAL FIBRILLATION
     Dosage: 75 mg
     Route: 048
     Dates: end: 20120918

REACTIONS (4)
  - Melaena [Recovered/Resolved]
  - Iron deficiency anaemia [Recovered/Resolved]
  - Eosinophilia [Not Recovered/Not Resolved]
  - Renal failure [Not Recovered/Not Resolved]
